FAERS Safety Report 7571342-6 (Version None)
Quarter: 2011Q2

REPORT INFORMATION
  Report Type: 
  Country: None (occurrence: None)
  Receive Date: 20110624
  Receipt Date: 20110616
  Transmission Date: 20111010
  Serious: Yes (Hospitalization)
  Sender: FDA-Public Use
  Company Number: B0726491A

PATIENT
  Sex: Male

DRUGS (7)
  1. ONDANSERTRON HYDROCHLORIDE [Suspect]
     Indication: PRODUCT USED FOR UNKNOWN INDICATION
     Route: 048
     Dates: start: 20100101
  2. PENTACARINAT [Suspect]
     Indication: PRODUCT USED FOR UNKNOWN INDICATION
     Route: 055
  3. GRANOCYTE [Suspect]
     Route: 042
     Dates: start: 20100101
  4. ESOMEPRAZOLE MAGNESIUM [Suspect]
     Indication: PRODUCT USED FOR UNKNOWN INDICATION
     Dosage: 20MG PER DAY
     Route: 048
  5. FOLIC ACID [Concomitant]
     Dosage: 5MG PER DAY
     Route: 065
  6. ATRIPLA [Suspect]
     Indication: HIV INFECTION
     Route: 048
     Dates: start: 20081101
  7. DOCETAXEL [Suspect]
     Indication: KAPOSI'S SARCOMA
     Route: 042
     Dates: start: 20100101

REACTIONS (5)
  - DYSPNOEA [None]
  - COUGH [None]
  - PLEURAL EFFUSION [None]
  - LUNG DISORDER [None]
  - PYREXIA [None]
